FAERS Safety Report 19580906 (Version 1)
Quarter: 2021Q3

REPORT INFORMATION
  Report Type: Report from Study
  Country: US (occurrence: US)
  Receive Date: 20210720
  Receipt Date: 20210720
  Transmission Date: 20211014
  Serious: Yes (Hospitalization)
  Sender: FDA-Public Use
  Company Number: US-GLAXOSMITHKLINE-US2021GSK067990

PATIENT
  Age: 41 Year
  Sex: Female
  Weight: 62.1 kg

DRUGS (20)
  1. DOSTARLIMAB [Suspect]
     Active Substance: DOSTARLIMAB
     Dosage: 500 MG, Q3W
     Route: 042
     Dates: start: 20210423, end: 20210423
  2. LORAZEPAM. [Concomitant]
     Active Substance: LORAZEPAM
     Indication: ANXIETY
  3. PACLITAXEL. [Suspect]
     Active Substance: PACLITAXEL
     Dosage: UNK
     Route: 048
     Dates: start: 20210319
  4. CEPHALEXIN. [Suspect]
     Active Substance: CEPHALEXIN
     Indication: INFECTION
     Dosage: 500 MG, TID
     Route: 048
     Dates: start: 20210313, end: 20210322
  5. ENCEQUIDAR(HM30181A) [Suspect]
     Active Substance: ENCEQUIDAR MESYLATE MONOHYDRATE
  6. CARBOPLATIN (NON?GSK COMPARATOR) [Suspect]
     Active Substance: CARBOPLATIN
     Indication: BREAST CANCER FEMALE
     Dosage: 187.8 MG, QW
     Route: 042
     Dates: start: 20210205, end: 20210205
  7. CARBOPLATIN (NON?GSK COMPARATOR) [Suspect]
     Active Substance: CARBOPLATIN
     Dosage: 125 MG
     Route: 042
     Dates: start: 20210402, end: 20210402
  8. LORAZEPAM. [Concomitant]
     Active Substance: LORAZEPAM
     Indication: NAUSEA
     Dosage: 0.5 MG
     Route: 048
     Dates: start: 20210205
  9. ENCEQUIDAR(HM30181A) [Suspect]
     Active Substance: ENCEQUIDAR MESYLATE MONOHYDRATE
  10. DOSTARLIMAB [Suspect]
     Active Substance: DOSTARLIMAB
     Dosage: 500 MG, Q3W
     Route: 042
     Dates: start: 20210305, end: 20210305
  11. PACLITAXEL. [Suspect]
     Active Substance: PACLITAXEL
     Dosage: 270 MG
     Dates: end: 20210402
  12. ZARXIO [Concomitant]
     Active Substance: FILGRASTIM-SNDZ
     Dosage: 300/0.5 MCG/ML
     Dates: start: 20210321
  13. KEFLEX [Concomitant]
     Active Substance: CEPHALEXIN
     Indication: URINARY TRACT INFECTION
     Dosage: 500 MG, TID
     Route: 048
     Dates: start: 20210313, end: 20210322
  14. DOSTARLIMAB [Suspect]
     Active Substance: DOSTARLIMAB
     Dosage: 500 MG, Q3W
     Route: 042
     Dates: start: 20210402, end: 20210402
  15. PACLITAXEL. [Suspect]
     Active Substance: PACLITAXEL
     Indication: BREAST CANCER
     Dosage: 12.9/900 MG 3QDW
     Route: 048
     Dates: start: 20210205, end: 20210509
  16. LIDOCAINE/PRILOCAINE TOPICAL CREAM [Concomitant]
     Indication: CENTRAL VENOUS CATHETERISATION
     Dosage: 2.5 %
     Route: 061
     Dates: start: 20210205
  17. ZARXIO [Concomitant]
     Active Substance: FILGRASTIM-SNDZ
     Indication: NEUTROPENIA
     Dosage: 300/0.5 MG/ML
     Route: 058
     Dates: start: 20210219
  18. ENCEQUIDAR(HM30181A) [Suspect]
     Active Substance: ENCEQUIDAR MESYLATE MONOHYDRATE
  19. DOSTARLIMAB [Suspect]
     Active Substance: DOSTARLIMAB
     Indication: BREAST CANCER FEMALE
     Dosage: 500 MG, Q3W
     Route: 042
     Dates: start: 20210205, end: 20210205
  20. CARBOPLATIN (NON?GSK COMPARATOR) [Suspect]
     Active Substance: CARBOPLATIN
     Dosage: 187.8 MG, QW
     Route: 042
     Dates: start: 20210507, end: 20210507

REACTIONS (1)
  - Hypersensitivity [Recovered/Resolved]

NARRATIVE: CASE EVENT DATE: 20210320
